FAERS Safety Report 18245000 (Version 4)
Quarter: 2021Q3

REPORT INFORMATION
  Report Type: Spontaneous
  Country: CA (occurrence: CA)
  Receive Date: 20200908
  Receipt Date: 20210909
  Transmission Date: 20211014
  Serious: Yes (Death, Hospitalization, Other)
  Sender: FDA-Public Use
  Company Number: CA-SAMSUNG BIOEPIS-SB-2020-27841

PATIENT
  Age: 62 Year
  Sex: Male
  Weight: 75 kg

DRUGS (5)
  1. ERGOCALCIFEROL. [Concomitant]
     Active Substance: ERGOCALCIFEROL
     Indication: PRODUCT USED FOR UNKNOWN INDICATION
     Dosage: UNKNOWN
     Route: 065
  2. URSODIOL. [Concomitant]
     Active Substance: URSODIOL
     Indication: PRODUCT USED FOR UNKNOWN INDICATION
     Route: 065
  3. CALCIUM [Concomitant]
     Active Substance: CALCIUM
     Indication: PRODUCT USED FOR UNKNOWN INDICATION
     Dosage: UNKNOWN
     Route: 065
  4. IRON [Concomitant]
     Active Substance: IRON
     Indication: PRODUCT USED FOR UNKNOWN INDICATION
     Dosage: UNKNOWN
     Route: 065
  5. INFLIXIMAB [Suspect]
     Active Substance: INFLIXIMAB
     Indication: CROHN^S DISEASE
     Route: 042

REACTIONS (23)
  - Faecal calprotectin increased [Fatal]
  - Weight decreased [Fatal]
  - General physical health deterioration [Fatal]
  - Drug level below therapeutic [Fatal]
  - Product use issue [Not Recovered/Not Resolved]
  - Blood iron decreased [Fatal]
  - Condition aggravated [Fatal]
  - Gastrointestinal haemorrhage [Fatal]
  - Loss of consciousness [Fatal]
  - Oedema peripheral [Fatal]
  - Myocardial infarction [Fatal]
  - Blood pressure decreased [Not Recovered/Not Resolved]
  - Cerebral artery occlusion [Fatal]
  - Rectal haemorrhage [Fatal]
  - Heart rate decreased [Fatal]
  - Drug level decreased [Fatal]
  - Intentional product use issue [Fatal]
  - Drug level above therapeutic [Fatal]
  - Off label use [Fatal]
  - Anaemia [Fatal]
  - Blood pressure diastolic decreased [Fatal]
  - Incorrect dose administered [Fatal]
  - Inappropriate schedule of product administration [Fatal]
